FAERS Safety Report 7395757-4 (Version None)
Quarter: 2011Q2

REPORT INFORMATION
  Report Type: 
  Country: None (occurrence: None)
  Receive Date: 20110405
  Receipt Date: 20091214
  Transmission Date: 20111010
  Serious: Yes (Other)
  Sender: FDA-Public Use
  Company Number: PHHY2009DE55644

PATIENT
  Sex: Male

DRUGS (5)
  1. EXTAVIA [Suspect]
     Dosage: 250 UG EVERY OTHER DAY
     Route: 058
  2. EXTAVIA [Suspect]
     Dosage: 0.8 ML EVERY OTHER DAY
     Route: 058
     Dates: start: 20100220
  3. IBUPROFEN [Concomitant]
     Dosage: UNK
     Route: 048
     Dates: start: 20091001
  4. EXTAVIA [Suspect]
     Indication: MULTIPLE SCLEROSIS
     Dosage: 1 ML/DAY
     Route: 058
     Dates: start: 20091012, end: 20091212
  5. ZOPICLON [Concomitant]
     Dosage: 1 DF, PRN
     Route: 048
     Dates: start: 20091001

REACTIONS (5)
  - BLADDER DYSFUNCTION [None]
  - ABDOMINAL PAIN [None]
  - CONSTIPATION [None]
  - BACK PAIN [None]
  - SLEEP DISORDER [None]
